FAERS Safety Report 4734058-7 (Version None)
Quarter: 2005Q3

REPORT INFORMATION
  Report Type: 
  Country: None (occurrence: None)
  Receive Date: 20050721
  Receipt Date: 20050501
  Transmission Date: 20060218
  Serious: No
  Sender: FDA-Public Use
  Company Number: 2005SP000511

PATIENT
  Age: 39 Year
  Sex: Female

DRUGS (7)
  1. LUNESTA [Suspect]
     Indication: INSOMNIA
     Dosage: 3 MG;1X;ORAL
     Route: 048
     Dates: start: 20050428, end: 20050428
  2. LEXAPRO [Concomitant]
  3. MINOCYCLINE [Concomitant]
  4. ORTHO TRI-CYCLEN [Concomitant]
  5. RESTORIL [Concomitant]
  6. HALCION [Concomitant]
  7. AMBIEN [Concomitant]

REACTIONS (1)
  - DYSGEUSIA [None]
